FAERS Safety Report 7451963-1 (Version None)
Quarter: 2011Q2

REPORT INFORMATION
  Report Type: 
  Country: None (occurrence: None)
  Receive Date: 20110502
  Receipt Date: 20110428
  Transmission Date: 20111010
  Serious: Yes (Other)
  Sender: FDA-Public Use
  Company Number: GXKR2011DE01561

PATIENT
  Age: 17 Year
  Sex: Male

DRUGS (1)
  1. RANITIDIN 1 A PHARMA [Suspect]
     Dosage: 750 MG, ONCE/SINGLE
     Route: 048

REACTIONS (1)
  - INTENTIONAL DRUG MISUSE [None]
